FAERS Safety Report 5557297-4 (Version None)
Quarter: 2007Q4

REPORT INFORMATION
  Report Type: 
  Country: None (occurrence: None)
  Receive Date: 20071214
  Receipt Date: 20071205
  Transmission Date: 20080405
  Serious: Yes (Death, Hospitalization, Other)
  Sender: FDA-Public Use
  Company Number: DE-BRISTOL-MYERS SQUIBB COMPANY-14012868

PATIENT
  Age: 70 Year
  Sex: Female

DRUGS (3)
  1. LYSODREN [Suspect]
     Indication: ADRENOCORTICAL CARCINOMA
     Dosage: 1 DOSAGE FORM=BETWEEN 3 AND 12 TABLETS
     Route: 048
     Dates: start: 20061122, end: 20071027
  2. LISINOPRIL [Suspect]
     Dosage: LISINOPRIL 20 MG
  3. FURO [Concomitant]

REACTIONS (5)
  - DRUG LEVEL ABOVE THERAPEUTIC [None]
  - HYPOKALAEMIA [None]
  - MALIGNANT NEOPLASM PROGRESSION [None]
  - PSYCHOMOTOR HYPERACTIVITY [None]
  - SLEEP DISORDER [None]
